FAERS Safety Report 4421692-7 (Version None)
Quarter: 2004Q3

REPORT INFORMATION
  Report Type: 
  Country: None (occurrence: None)
  Receive Date: 20040804
  Receipt Date: 20040722
  Transmission Date: 20050211
  Serious: Yes (Hospitalization)
  Sender: FDA-Public Use
  Company Number: MK200407-0219-1

PATIENT
  Age: 25 Year
  Sex: Female
  Weight: 75 kg

DRUGS (1)
  1. OPTIRAY 320 [Suspect]
     Indication: ANGIOGRAM CEREBRAL
     Dosage: 5 ML, SINGLE USE
     Dates: start: 20040504, end: 20040504

REACTIONS (1)
  - BLINDNESS TRANSIENT [None]
